FAERS Safety Report 23078668 (Version 1)
Quarter: 2023Q4

REPORT INFORMATION
  Report Type: Report from Study
  Country: US (occurrence: US)
  Receive Date: 20231018
  Receipt Date: 20231018
  Transmission Date: 20240110
  Serious: Yes (Hospitalization)
  Sender: FDA-Public Use
  Company Number: US-UCBSA-2023049841

PATIENT
  Age: 9 Year
  Sex: Male

DRUGS (1)
  1. FINTEPLA [Suspect]
     Active Substance: FENFLURAMINE
     Indication: Lennox-Gastaut syndrome
     Dosage: 3.7 MILLILITER, 2X/DAY (BID)
     Dates: start: 20230920, end: 20231013

REACTIONS (1)
  - Serum serotonin [Recovered/Resolved]

NARRATIVE: CASE EVENT DATE: 20231013
